FAERS Safety Report 5988485-0 (Version None)
Quarter: 2008Q4

REPORT INFORMATION
  Report Type: 
  Country: None (occurrence: None)
  Receive Date: 20081208
  Receipt Date: 20081208
  Transmission Date: 20090506
  Serious: Yes (Hospitalization)
  Sender: FDA-Public Use
  Company Number: None

PATIENT
  Age: 14 Year
  Sex: Female
  Weight: 98.8842 kg

DRUGS (1)
  1. VYVANSE [Suspect]
     Indication: ATTENTION DEFICIT/HYPERACTIVITY DISORDER
     Dosage: 30 MG ONE CAP OD PO
     Route: 048
     Dates: start: 20081126, end: 20081206

REACTIONS (4)
  - ABNORMAL BEHAVIOUR [None]
  - AGGRESSION [None]
  - CEREBROVASCULAR ACCIDENT [None]
  - HOSTILITY [None]
